FAERS Safety Report 9117531 (Version 10)
Quarter: 2014Q2

REPORT INFORMATION
  Report Type: Spontaneous
  Country: US (occurrence: US)
  Receive Date: 20130225
  Receipt Date: 20140618
  Transmission Date: 20141212
  Serious: Yes (Hospitalization, Other)
  Sender: FDA-Public Use
  Company Number: US-009507513-1302USA009125

PATIENT
  Sex: Female
  Weight: 62.13 kg

DRUGS (3)
  1. FOSAMAX [Suspect]
     Indication: OSTEOPENIA
     Dosage: 10 MG, QD
     Route: 048
     Dates: start: 1997, end: 200110
  2. FOSAMAX [Suspect]
     Indication: OSTEITIS DEFORMANS
     Dosage: 70 MG, QW
     Route: 048
     Dates: start: 200110, end: 2007
  3. HYDROCHLOROTHIAZIDE [Concomitant]
     Indication: HYPERTENSION
     Dosage: 12.5 MG, UNK
     Route: 048
     Dates: start: 19970711

REACTIONS (56)
  - Internal fixation of fracture [Unknown]
  - Fracture nonunion [Unknown]
  - Injection [Unknown]
  - Open reduction of fracture [Unknown]
  - Cardiac operation [Unknown]
  - Intramedullary rod insertion [Unknown]
  - Bone graft [Unknown]
  - Removal of internal fixation [Unknown]
  - Supraventricular tachycardia [Unknown]
  - Atrial fibrillation [Unknown]
  - Bone graft [Unknown]
  - Bone graft [Unknown]
  - Basal cell carcinoma [Unknown]
  - Coronary artery bypass [Unknown]
  - Aortic valve replacement [Unknown]
  - Thoracostomy [Unknown]
  - Acute myocardial infarction [Unknown]
  - Atrial fibrillation [Unknown]
  - Atrial tachycardia [Unknown]
  - Femur fracture [Unknown]
  - Femur fracture [Unknown]
  - Femur fracture [Unknown]
  - Femur fracture [Unknown]
  - Fracture delayed union [Unknown]
  - Arthritis [Unknown]
  - Bursitis [Unknown]
  - Spinal osteoarthritis [Unknown]
  - Enthesopathy [Unknown]
  - Skeletal injury [Unknown]
  - Aortic stenosis [Unknown]
  - Aortic valve incompetence [Unknown]
  - Mitral valve incompetence [Unknown]
  - Large intestinal polypectomy [Unknown]
  - Medical device removal [Unknown]
  - Blood potassium increased [Recovered/Resolved]
  - Osteoporosis [Unknown]
  - Lymphadenopathy [Unknown]
  - Pleural effusion [Unknown]
  - Granuloma [Unknown]
  - Haemangioma of liver [Unknown]
  - Joint effusion [Unknown]
  - Osteoarthritis [Unknown]
  - Osteoarthritis [Unknown]
  - Incorrect dose administered [Unknown]
  - Pneumothorax [Unknown]
  - Pulmonary oedema [Unknown]
  - Coronary artery disease [Unknown]
  - Osteoarthritis [Unknown]
  - Pain [Unknown]
  - Infection [Unknown]
  - Anaemia postoperative [Unknown]
  - Blood triglycerides increased [Unknown]
  - Coronary artery disease [Unknown]
  - Mitral valve prolapse [Unknown]
  - Asthenia [Unknown]
  - Drug ineffective [Unknown]
